FAERS Safety Report 4522045-3 (Version None)
Quarter: 2004Q4

REPORT INFORMATION
  Report Type: 
  Country: None (occurrence: None)
  Receive Date: 20041209
  Receipt Date: 20041203
  Transmission Date: 20050328
  Serious: Yes (Life-Threatening, Hospitalization, Disabling)
  Sender: FDA-Public Use
  Company Number: JP-BRISTOL-MYERS SQUIBB COMPANY-12784161

PATIENT
  Age: 19 Year
  Sex: Male

DRUGS (6)
  1. VEPESID [Suspect]
     Indication: BONE SARCOMA
     Route: 042
     Dates: start: 20011226, end: 20020601
  2. IFOMIDE [Suspect]
     Indication: BONE SARCOMA
     Route: 042
     Dates: start: 20020528, end: 20021019
  3. METHOTREXATE [Suspect]
     Indication: BONE SARCOMA
     Route: 042
     Dates: start: 20020212, end: 20021001
  4. RANDA [Suspect]
     Indication: BONE SARCOMA
     Route: 042
     Dates: start: 20011226, end: 20020903
  5. ADRIACIN [Suspect]
     Indication: BONE SARCOMA
     Route: 042
     Dates: start: 20011227, end: 20020418
  6. THERARUBICIN [Suspect]
     Indication: BONE SARCOMA
     Route: 042
     Dates: start: 20020625, end: 20020905

REACTIONS (2)
  - ACUTE MYELOID LEUKAEMIA [None]
  - TREATMENT RELATED SECONDARY MALIGNANCY [None]
